FAERS Safety Report 19865778 (Version 1)
Quarter: 2021Q3

REPORT INFORMATION
  Report Type: Spontaneous
  Country: US (occurrence: US)
  Receive Date: 20210921
  Receipt Date: 20210921
  Transmission Date: 20211014
  Serious: Yes (Other)
  Sender: FDA-Public Use
  Company Number: US-PURDUE-USA-2021-0284805

PATIENT
  Sex: Male

DRUGS (1)
  1. COLACE [Suspect]
     Active Substance: DOCUSATE SODIUM
     Indication: PRODUCT USED FOR UNKNOWN INDICATION
     Dosage: UNK UNK, NOCTE
     Route: 048
     Dates: start: 20210916

REACTIONS (2)
  - Foreign body in throat [Unknown]
  - Throat irritation [Unknown]

NARRATIVE: CASE EVENT DATE: 20210916
